FAERS Safety Report 10091475 (Version 1)
Quarter: 2014Q2

REPORT INFORMATION
  Report Type: Spontaneous
  Country: US (occurrence: US)
  Receive Date: 20140421
  Receipt Date: 20140421
  Transmission Date: 20141212
  Serious: No
  Sender: FDA-Public Use
  Company Number: US-B.I. PHARMACEUTICALS,INC./RIDGEFIELD-2014-BI-16491BP

PATIENT
  Sex: Female

DRUGS (2)
  1. MICARDIS HCT [Suspect]
     Indication: HYPERTENSION
     Dosage: DOSE PER APPLICATION: 80 MG / 25 MG; DAILY DOSE: 80 MG / 25 MG
     Route: 048
     Dates: end: 201403
  2. TELMISARTAN/HCTZ [Suspect]
     Indication: HYPERTENSION
     Dosage: DAILY DOSE: 80 MG / 25 MG
     Route: 048
     Dates: start: 201403

REACTIONS (2)
  - Pain in extremity [Recovered/Resolved]
  - Muscle spasms [Not Recovered/Not Resolved]
